FAERS Safety Report 24296021 (Version 2)
Quarter: 2024Q3

REPORT INFORMATION
  Report Type: Spontaneous
  Country: US (occurrence: None)
  Receive Date: 20240909
  Receipt Date: 20240910
  Transmission Date: 20241017
  Serious: No
  Sender: ASTRAZENECA
  Company Number: 2024A202294

PATIENT
  Age: 50 Year
  Sex: Female

DRUGS (1)
  1. BYDUREON BCISE [Suspect]
     Active Substance: EXENATIDE

REACTIONS (7)
  - Injection site haemorrhage [Unknown]
  - Product use issue [Unknown]
  - Device delivery system issue [Unknown]
  - Device defective [Unknown]
  - Incorrect dose administered by device [Unknown]
  - Product preparation error [Unknown]
  - Product dose omission issue [Unknown]

NARRATIVE: CASE EVENT DATE: 20240902
